FAERS Safety Report 9926389 (Version 1)
Quarter: 2014Q1

REPORT INFORMATION
  Report Type: Spontaneous
  Country: US (occurrence: US)
  Receive Date: 20140226
  Receipt Date: 20140226
  Transmission Date: 20141002
  Serious: No
  Sender: FDA-Public Use
  Company Number: US-AMGEN-USASP2013067252

PATIENT
  Age: 59 Year
  Sex: Female
  Weight: 72.56 kg

DRUGS (13)
  1. ENBREL [Suspect]
     Indication: PRODUCT USED FOR UNKNOWN INDICATION
     Dosage: 50 MG, QWK
     Route: 058
  2. LEVOTHYROXIN [Concomitant]
     Dosage: 100 MUG, UNK
  3. CALCIUM D                          /00944201/ [Concomitant]
     Dosage: UNK
  4. POTASSIUM CHLORIDE [Concomitant]
     Dosage: 10 MEQ, UNK
  5. CHLORTHALIDONE [Concomitant]
     Dosage: 50 MG, UNK
  6. MULTIVITAMINS, PLAIN [Concomitant]
     Dosage: UNK
  7. METFORMIN [Concomitant]
     Dosage: 1000 MG, UNK
  8. IRON [Concomitant]
     Dosage: UNK
  9. LISINOPRIL [Concomitant]
     Dosage: 10 MG, UNK
  10. VENLAFAXINE [Concomitant]
     Dosage: 75 MG, UNK
  11. GABAPENTIN [Concomitant]
     Dosage: 300 MG, UNK
  12. OMEPRAZOLE [Concomitant]
     Dosage: 20 MG, UNK
  13. VICODIN [Concomitant]
     Dosage: 5-300 MG

REACTIONS (1)
  - Headache [Unknown]
